FAERS Safety Report 8155769-X (Version None)
Quarter: 2012Q1

REPORT INFORMATION
  Report Type: 
  Country: None (occurrence: None)
  Receive Date: 20120222
  Receipt Date: 20120207
  Transmission Date: 20120608
  Serious: Yes (Hospitalization, Other)
  Sender: FDA-Public Use
  Company Number: US-RANBAXY-2011US-46079

PATIENT
  Age: 82 Year
  Sex: Male

DRUGS (2)
  1. WARFARIN SODIUM [Suspect]
     Indication: PRODUCT USED FOR UNKNOWN INDICATION
     Dosage: 4 MG, SINGLE
     Route: 065
  2. ISOTRETINOIN [Suspect]
     Indication: SKIN CANCER METASTATIC
     Dosage: 10 MG, SINGLE
     Route: 048

REACTIONS (13)
  - DISTURBANCE IN ATTENTION [None]
  - DRUG INTERACTION [None]
  - CARDIAC FAILURE CONGESTIVE [None]
  - LIP DRY [None]
  - PERSONALITY CHANGE [None]
  - EPISTAXIS [None]
  - OFF LABEL USE [None]
  - DRY EYE [None]
  - OEDEMA PERIPHERAL [None]
  - PRURITUS [None]
  - IRRITABILITY [None]
  - DYSPNOEA [None]
  - INTERNATIONAL NORMALISED RATIO INCREASED [None]
